FAERS Safety Report 9405042 (Version 2)
Quarter: 2013Q3

REPORT INFORMATION
  Report Type: Spontaneous
  Country: US (occurrence: US)
  Receive Date: 20130717
  Receipt Date: 20130723
  Transmission Date: 20140515
  Serious: Yes (Other)
  Sender: FDA-Public Use
  Company Number: US-VERTEX PHARMACEUTICALS INC-2013-007983

PATIENT
  Age: 42 Year
  Sex: Male
  Weight: 101 kg

DRUGS (5)
  1. INCIVEK [Suspect]
     Indication: CHRONIC HEPATITIS C
     Dosage: 750 MG, TID
     Route: 048
     Dates: start: 20130518, end: 20130630
  2. PEGINTERFERON [Suspect]
     Indication: CHRONIC HEPATITIS C
     Dosage: 180 ?G, QW
     Dates: start: 20130518, end: 20130630
  3. RIBAVIRIN [Suspect]
     Indication: CHRONIC HEPATITIS C
     Dosage: 1200 MG, BID
     Route: 048
     Dates: start: 20130519, end: 20130630
  4. ZOLOFT [Concomitant]
     Dosage: 25 MG, QD
  5. ACYCLOVIR [Concomitant]
     Dosage: 200 MG,  5 TIMES A DAY

REACTIONS (6)
  - Rash macular [Recovered/Resolved]
  - Sunburn [Recovered/Resolved]
  - Tongue dry [Unknown]
  - Urticaria [Unknown]
  - Skin exfoliation [Recovered/Resolved]
  - Pruritus generalised [Unknown]
